FAERS Safety Report 12960324 (Version 2)
Quarter: 2016Q4

REPORT INFORMATION
  Report Type: Report from Study
  Country: US (occurrence: US)
  Receive Date: 20161121
  Receipt Date: 20161214
  Transmission Date: 20170207
  Serious: Yes (Hospitalization)
  Sender: FDA-Public Use
  Company Number: US-TEVA-711267USA

PATIENT
  Age: 16 Year
  Sex: Female
  Weight: 61.05 kg

DRUGS (5)
  1. CINQAIR [Suspect]
     Active Substance: RESLIZUMAB
     Indication: EOSINOPHILIC OESOPHAGITIS
     Route: 041
     Dates: start: 20161010
  2. LEVSIN [Concomitant]
     Active Substance: HYOSCYAMINE SULFATE
  3. ALBUTEROL. [Concomitant]
     Active Substance: ALBUTEROL
     Route: 055
  4. LORATADINE. [Concomitant]
     Active Substance: LORATADINE
  5. KENALOG [Concomitant]
     Active Substance: TRIAMCINOLONE ACETONIDE
     Route: 061

REACTIONS (1)
  - Biliary tract disorder [Unknown]

NARRATIVE: CASE EVENT DATE: 20161104
